FAERS Safety Report 8512504-0 (Version None)
Quarter: 2012Q3

REPORT INFORMATION
  Report Type: 
  Country: None (occurrence: None)
  Receive Date: 20120716
  Receipt Date: 20120509
  Transmission Date: 20120928
  Serious: Yes (Hospitalization)
  Sender: FDA-Public Use
  Company Number: JP-GLAXOSMITHKLINE-B0800912A

PATIENT
  Sex: Female

DRUGS (5)
  1. LAMICTAL [Suspect]
     Dosage: 50MG PER DAY
     Route: 048
     Dates: start: 20120313, end: 20120326
  2. LAMICTAL [Suspect]
     Dosage: 100MG PER DAY
     Route: 048
     Dates: start: 20120327, end: 20120410
  3. LAMICTAL [Suspect]
     Indication: BIPOLAR DISORDER
     Dosage: 25MG PER DAY
     Route: 048
     Dates: start: 20120221, end: 20120312
  4. LAMICTAL [Suspect]
     Dosage: 125MG PER DAY
     Route: 048
     Dates: start: 20120411, end: 20120417
  5. LAMICTAL [Suspect]
     Dosage: 150MG PER DAY
     Route: 048
     Dates: start: 20120418, end: 20120501

REACTIONS (37)
  - ORAL MUCOSA EROSION [None]
  - SKIN OEDEMA [None]
  - LYMPHOCYTE STIMULATION TEST POSITIVE [None]
  - GAMMA-GLUTAMYLTRANSFERASE INCREASED [None]
  - DEPRESSION [None]
  - STUPOR [None]
  - ORAL MUCOSAL ERYTHEMA [None]
  - APHTHOUS STOMATITIS [None]
  - ORAL MUCOSAL ERUPTION [None]
  - C-REACTIVE PROTEIN INCREASED [None]
  - STEVENS-JOHNSON SYNDROME [None]
  - LISTLESS [None]
  - LIP BLISTER [None]
  - MUCOSAL EROSION [None]
  - LIP ULCERATION [None]
  - SERUM AMYLOID A PROTEIN INCREASED [None]
  - ALANINE AMINOTRANSFERASE INCREASED [None]
  - TONGUE DISORDER [None]
  - PALMAR ERYTHEMA [None]
  - CONJUNCTIVAL HYPERAEMIA [None]
  - OROPHARYNGEAL PAIN [None]
  - BLISTER [None]
  - DERMATITIS [None]
  - MUCOSAL ULCERATION [None]
  - ASPARTATE AMINOTRANSFERASE INCREASED [None]
  - EYE DISCHARGE [None]
  - SKIN DEGENERATIVE DISORDER [None]
  - NEUTROPHIL PERCENTAGE INCREASED [None]
  - WHITE BLOOD CELL COUNT INCREASED [None]
  - ERYTHEMA MULTIFORME [None]
  - PYREXIA [None]
  - EPIDERMAL NECROSIS [None]
  - LYMPHOCYTIC INFILTRATION [None]
  - LIP EROSION [None]
  - PLANTAR ERYTHEMA [None]
  - PHARYNGEAL ERYTHEMA [None]
  - MOUTH ULCERATION [None]
